FAERS Safety Report 9417370 (Version 1)
Quarter: 2013Q3

REPORT INFORMATION
  Report Type: Spontaneous
  Country: US (occurrence: US)
  Receive Date: 20130724
  Receipt Date: 20130724
  Transmission Date: 20140515
  Serious: No
  Sender: FDA-Public Use
  Company Number: US-BRISTOL-MYERS SQUIBB COMPANY-18846261

PATIENT
  Age: 78 Year
  Sex: Female

DRUGS (6)
  1. ELIQUIS [Suspect]
     Dates: start: 20130415
  2. FOSAMAX [Concomitant]
  3. METFORMIN [Concomitant]
  4. MULTAQ [Concomitant]
  5. LEVOTHYROXINE [Concomitant]
  6. OMEGA 3 FISH OIL [Concomitant]

REACTIONS (2)
  - Hunger [Unknown]
  - Weight increased [Unknown]
